FAERS Safety Report 19713905 (Version 1)
Quarter: 2021Q3

REPORT INFORMATION
  Report Type: Spontaneous
  Country: FR (occurrence: FR)
  Receive Date: 20210818
  Receipt Date: 20210818
  Transmission Date: 20211014
  Serious: Yes (Hospitalization, Other)
  Sender: FDA-Public Use
  Company Number: FR-SA-2021SA263797

PATIENT
  Age: 60 Year
  Sex: Male
  Weight: 79 kg

DRUGS (9)
  1. RIFAMPICIN [Suspect]
     Active Substance: RIFAMPIN
     Indication: DEVICE RELATED INFECTION
     Dosage: UNK
     Dates: start: 20191211, end: 201912
  2. CEFTAROLINE FOSAMIL [Suspect]
     Active Substance: CEFTAROLINE FOSAMIL
     Indication: DEVICE RELATED INFECTION
     Dosage: 600 MG, Q8H
     Route: 040
     Dates: start: 20210710, end: 20210713
  3. CEFEPIME HYDROCHLORIDE. [Suspect]
     Active Substance: CEFEPIME HYDROCHLORIDE
     Dosage: 2 G, Q8H
     Route: 041
     Dates: start: 20210630, end: 20210713
  4. CEFEPIME HYDROCHLORIDE. [Suspect]
     Active Substance: CEFEPIME HYDROCHLORIDE
     Indication: DEVICE RELATED INFECTION
     Dosage: UNK
     Route: 041
     Dates: start: 20191121, end: 201912
  5. LINEZOLIDE [Concomitant]
     Active Substance: LINEZOLID
     Indication: DEVICE RELATED INFECTION
     Dosage: 600 MG, 1X
     Dates: start: 20210709, end: 20210709
  6. DAPTOMYCINE [Concomitant]
     Active Substance: DAPTOMYCIN
     Dosage: 750 MG, QD (24 HOURS)
     Route: 041
     Dates: start: 20210630, end: 20210713
  7. ENOXAPARINE SODIQUE [Concomitant]
     Active Substance: ENOXAPARIN SODIUM
     Indication: ANTICOAGULANT THERAPY
     Dosage: UNK
     Dates: start: 2021
  8. DAPTOMYCINE [Concomitant]
     Active Substance: DAPTOMYCIN
     Dosage: 700 MG, QD (24 HOURS)
     Dates: start: 20210721
  9. DAPTOMYCINE [Concomitant]
     Active Substance: DAPTOMYCIN
     Indication: DEVICE RELATED INFECTION
     Dosage: 700 MG, QW
     Route: 041
     Dates: start: 20210714, end: 20210720

REACTIONS (2)
  - Autoimmune nephritis [Recovered/Resolved]
  - Acute kidney injury [Recovering/Resolving]

NARRATIVE: CASE EVENT DATE: 20191213
